FAERS Safety Report 23601649 (Version 1)
Quarter: 2024Q1

REPORT INFORMATION
  Report Type: Spontaneous
  Country: US (occurrence: None)
  Receive Date: 20240306
  Receipt Date: 20240306
  Transmission Date: 20240410
  Serious: No
  Sender: FDA-Public Use
  Company Number: None

PATIENT
  Sex: Female

DRUGS (8)
  1. CAPECITABINE [Suspect]
     Active Substance: CAPECITABINE
     Indication: Colon cancer
     Dosage: FREQ: TAKE 2 TABLETS BY MOUTH EVERY 12 HOURS MONDAY - FRIDAY EVERY 21 DAY CYCLE. TAKE WITHIN 30 ?MIN
     Route: 048
     Dates: start: 20231114
  2. ACETAMINOPHEN [Concomitant]
     Active Substance: ACETAMINOPHEN
  3. LOPERAMIDE [Concomitant]
     Active Substance: LOPERAMIDE
  4. METHOCARBAMOL [Concomitant]
     Active Substance: METHOCARBAMOL
  5. ONDANSETRON [Concomitant]
     Active Substance: ONDANSETRON
  6. PROCHLORPER [Concomitant]
  7. SENOKOT [Concomitant]
  8. TRAMADOL HCL [Concomitant]

REACTIONS (2)
  - Intentional dose omission [None]
  - Surgery [None]
